FAERS Safety Report 4600063-4 (Version None)
Quarter: 2005Q1

REPORT INFORMATION
  Report Type: 
  Country: None (occurrence: None)
  Receive Date: 20050307
  Receipt Date: 20041119
  Transmission Date: 20050727
  Serious: Yes (Hospitalization)
  Sender: FDA-Public Use
  Company Number: ES-BRISTOL-MYERS SQUIBB COMPANY-12770723

PATIENT
  Age: 43 Year
  Sex: Male

DRUGS (3)
  1. ATAZANAVIR [Suspect]
     Indication: HIV INFECTION
     Dosage: THERAPY INTERRUPTED 05-NOV-2004, RESTARTED ON 02-DEC-2004
     Dates: start: 20040326
  2. VIDEX [Suspect]
     Indication: HIV INFECTION
     Dosage: THERAPY INTERRUPTED 05-NOV-2004
     Dates: start: 20021115
  3. ZERIT [Concomitant]
     Indication: HIV INFECTION
     Dosage: THERAPY INTERRUPTED 05-NOV-2004
     Dates: start: 19970918

REACTIONS (2)
  - HYPERTRIGLYCERIDAEMIA [None]
  - PANCREATITIS ACUTE [None]
